FAERS Safety Report 8953644 (Version 2)
Quarter: 2015Q1

REPORT INFORMATION
  Report Type: Report from Study
  Country: FR (occurrence: FR)
  Receive Date: 20121206
  Receipt Date: 20150209
  Transmission Date: 20150721
  Serious: Yes (Death, Hospitalization)
  Sender: FDA-Public Use
  Company Number: FR-ROCHE-1164932

PATIENT
  Age: 59 Year
  Sex: Female

DRUGS (4)
  1. RITUXIMAB [Suspect]
     Active Substance: RITUXIMAB
     Route: 041
     Dates: start: 20071205
  2. RITUXIMAB [Suspect]
     Active Substance: RITUXIMAB
     Indication: RHEUMATOID ARTHRITIS
     Dosage: DAY 1
     Route: 041
     Dates: start: 20070425
  3. RITUXIMAB [Suspect]
     Active Substance: RITUXIMAB
     Route: 041
     Dates: start: 20080606, end: 20090228
  4. RITUXIMAB [Suspect]
     Active Substance: RITUXIMAB
     Dosage: DAY 15
     Route: 041
     Dates: start: 20070511

REACTIONS (4)
  - Bronchopneumonia [Recovered/Resolved]
  - Sputum purulent [Not Recovered/Not Resolved]
  - Cough [Recovered/Resolved]
  - Breast cancer [Fatal]

NARRATIVE: CASE EVENT DATE: 20070726
